FAERS Safety Report 10671712 (Version 1)
Quarter: 2014Q4

REPORT INFORMATION
  Report Type: Spontaneous
  Country: US (occurrence: US)
  Receive Date: 20141223
  Receipt Date: 20141223
  Transmission Date: 20150529
  Serious: Yes (Death, Hospitalization, Other)
  Sender: FDA-Public Use
  Company Number: US-PFIZER INC-2014349089

PATIENT
  Age: 75 Year
  Sex: Female

DRUGS (2)
  1. REVATIO [Suspect]
     Active Substance: SILDENAFIL CITRATE
     Indication: MITRAL VALVE DISEASE
  2. REVATIO [Suspect]
     Active Substance: SILDENAFIL CITRATE
     Indication: PULMONARY HYPERTENSION
     Dosage: 20 MG, 3X/DAY

REACTIONS (4)
  - Dysphagia [Unknown]
  - Cardiac failure congestive [Fatal]
  - Weight decreased [Unknown]
  - Hip fracture [Unknown]

NARRATIVE: CASE EVENT DATE: 2014
